FAERS Safety Report 25865764 (Version 2)
Quarter: 2025Q4

REPORT INFORMATION
  Report Type: Spontaneous
  Country: US (occurrence: US)
  Receive Date: 20250930
  Receipt Date: 20251013
  Transmission Date: 20260117
  Serious: Yes (Hospitalization)
  Sender: TEVA
  Company Number: US-TEVA-VS-3375327

PATIENT
  Age: 28 Year
  Sex: Female

DRUGS (2)
  1. ACARBOSE [Suspect]
     Active Substance: ACARBOSE
     Indication: Hypoglycaemia
     Route: 065
  2. INSULIN NOS [Suspect]
     Active Substance: INSULIN NOS
     Indication: Intentional product misuse
     Route: 065

REACTIONS (4)
  - Factitious disorder [Unknown]
  - Treatment failure [Unknown]
  - Hypoglycaemia [Unknown]
  - Intentional product misuse [Unknown]
